FAERS Safety Report 6647075-7 (Version None)
Quarter: 2010Q1

REPORT INFORMATION
  Report Type: 
  Country: None (occurrence: None)
  Receive Date: 20100323
  Receipt Date: 20100310
  Transmission Date: 20100710
  Serious: No
  Sender: FDA-Public Use
  Company Number: US-B.I. PHARMACEUTICALS,INC./RIDGEFIELD-2010-BP-02840BP

PATIENT
  Age: 75 Year
  Sex: Male

DRUGS (7)
  1. SPIRIVA [Suspect]
     Indication: CHRONIC OBSTRUCTIVE PULMONARY DISEASE
     Dosage: 18 MCG
     Route: 055
     Dates: start: 20050101
  2. ALBUTEROL [Concomitant]
     Indication: MYOCARDIAL INFARCTION
     Dates: start: 20050101
  3. ZOCOR [Concomitant]
     Indication: MYOCARDIAL INFARCTION
     Dates: start: 20050101
  4. LISINOPRIL [Concomitant]
     Indication: MYOCARDIAL INFARCTION
     Dates: start: 20050101
  5. ASPIRIN [Concomitant]
     Indication: MYOCARDIAL INFARCTION
     Dates: start: 20050101
  6. VITAMIN TAB [Concomitant]
     Indication: MYOCARDIAL INFARCTION
     Dates: start: 20050101
  7. FLOMAX [Concomitant]
     Indication: PROSTATOMEGALY
     Dates: start: 20100101

REACTIONS (1)
  - DRUG INEFFECTIVE [None]
